FAERS Safety Report 17139872 (Version 3)
Quarter: 2019Q4

REPORT INFORMATION
  Report Type: Spontaneous
  Country: CO (occurrence: CO)
  Receive Date: 20191211
  Receipt Date: 20191227
  Transmission Date: 20200122
  Serious: Yes (Death, Life-Threatening, Hospitalization, Other)
  Sender: FDA-Public Use
  Company Number: CO-UNITED THERAPEUTICS-UNT-2019-020449

PATIENT

DRUGS (6)
  1. WARFARINA [Concomitant]
     Active Substance: WARFARIN
     Indication: PULMONARY ARTERIAL HYPERTENSION
     Dosage: 2 MG, QD
     Route: 048
     Dates: start: 2018, end: 20191204
  2. LEVOTHYROXINE. [Concomitant]
     Active Substance: LEVOTHYROXINE
     Indication: HYPOTHYROIDISM
     Dosage: 75 MG, QD
     Route: 048
     Dates: start: 2018, end: 20191204
  3. DIGOXIN. [Concomitant]
     Active Substance: DIGOXIN
     Indication: CARDIAC FAILURE
     Dosage: 0.25 MG, QD
     Route: 048
     Dates: start: 2018, end: 20191204
  4. REMODULIN [Suspect]
     Active Substance: TREPROSTINIL
     Indication: PULMONARY ARTERIAL HYPERTENSION
     Dosage: 0.007 ?G/KG, CONTINUING
     Route: 058
     Dates: start: 20191102, end: 20191204
  5. BOSENTAN. [Concomitant]
     Active Substance: BOSENTAN
     Indication: PULMONARY ARTERIAL HYPERTENSION
     Dosage: 125 MG, QD
     Route: 048
     Dates: start: 2018, end: 20191204
  6. SILDENAFIL. [Concomitant]
     Active Substance: SILDENAFIL
     Indication: PULMONARY ARTERIAL HYPERTENSION
     Dosage: 50 MG, QD
     Route: 048
     Dates: start: 2018, end: 20191204

REACTIONS (7)
  - Generalised oedema [Unknown]
  - Blood pressure decreased [Unknown]
  - Dyspnoea [Unknown]
  - Cardio-respiratory arrest [Fatal]
  - Disease progression [Fatal]
  - Cardiac failure [Fatal]
  - Renal failure [Unknown]

NARRATIVE: CASE EVENT DATE: 2019
